FAERS Safety Report 6677426-9 (Version None)
Quarter: 2010Q2

REPORT INFORMATION
  Report Type: 
  Country: None (occurrence: None)
  Receive Date: 20100412
  Receipt Date: 20100201
  Transmission Date: 20101027
  Serious: No
  Sender: FDA-Public Use
  Company Number: US-ALEXION-A201000115

PATIENT
  Sex: Male

DRUGS (7)
  1. SOLIRIS [Suspect]
     Indication: PAROXYSMAL NOCTURNAL HAEMOGLOBINURIA
     Dosage: 600 MG, QW
     Route: 042
     Dates: start: 20070527, end: 20070615
  2. SOLIRIS [Suspect]
     Dosage: 900 MG, Q2W
     Route: 042
     Dates: start: 20070622
  3. SOLIRIS [Suspect]
     Dosage: 1200 MG, Q2W
     Route: 042
     Dates: start: 20100224
  4. PREDNISOLONE [Concomitant]
     Dosage: UNK
     Route: 048
  5. FOLIC ACID [Concomitant]
     Dosage: 1 MG, QD
     Route: 048
  6. MULTIVITAMIN                       /00831701/ [Concomitant]
     Dosage: UNK
     Route: 048
  7. NEUPOGEN [Concomitant]
     Dosage: QW INJECTION

REACTIONS (1)
  - HAEMOLYSIS [None]
